FAERS Safety Report 5592535-3 (Version None)
Quarter: 2008Q1

REPORT INFORMATION
  Report Type: 
  Country: None (occurrence: None)
  Receive Date: 20080111
  Receipt Date: 20080102
  Transmission Date: 20080703
  Serious: Yes (Life-Threatening, Hospitalization, Other)
  Sender: FDA-Public Use
  Company Number: 08H-028-0313663-00

PATIENT
  Age: 65 Year
  Sex: Male

DRUGS (3)
  1. HEPARIN SODIUM INJECTION [Suspect]
     Indication: DRUG USE FOR UNKNOWN INDICATION
  2. HEPARIN SODIUM INJECTION [Suspect]
     Indication: DRUG USE FOR UNKNOWN INDICATION
     Dosage: 5000 IU, EVERY 12 HOURS, SUBCUTANEOUS
     Route: 058
  3. ACETYLSALICYLIC ACID SRT [Concomitant]

REACTIONS (4)
  - DEEP VEIN THROMBOSIS [None]
  - HEPARIN-INDUCED THROMBOCYTOPENIA [None]
  - JUGULAR VEIN THROMBOSIS [None]
  - SURGICAL FAILURE [None]
